FAERS Safety Report 19015836 (Version 2)
Quarter: 2021Q2

REPORT INFORMATION
  Report Type: Report from Study
  Country: KW (occurrence: KW)
  Receive Date: 20210316
  Receipt Date: 20210601
  Transmission Date: 20210717
  Serious: Yes (Other)
  Sender: FDA-Public Use
  Company Number: KW-TAKEDA-2021TUS016806

PATIENT
  Age: 64 Year
  Sex: Male

DRUGS (2)
  1. BORTEZOMIB. [Suspect]
     Active Substance: BORTEZOMIB
     Indication: PLASMA CELL MYELOMA
     Dosage: 3.5 MILLIGRAM, 1/WEEK
     Route: 065
     Dates: start: 20200804, end: 202103
  2. BORTEZOMIB. [Suspect]
     Active Substance: BORTEZOMIB
     Dosage: 3.5 MILLIGRAM, 1/WEEK
     Route: 065
     Dates: start: 2021

REACTIONS (1)
  - Transplant [Unknown]

NARRATIVE: CASE EVENT DATE: 202103
